FAERS Safety Report 20923970 (Version 1)
Quarter: 2022Q2

REPORT INFORMATION
  Report Type: Spontaneous
  Country: US (occurrence: US)
  Receive Date: 20220607
  Receipt Date: 20220607
  Transmission Date: 20220720
  Serious: Yes (Other)
  Sender: FDA-Public Use
  Company Number: US-SA-SAC20220601000935

PATIENT
  Age: 42 Year

DRUGS (1)
  1. ZANTAC [Suspect]
     Active Substance: RANITIDINE HYDROCHLORIDE
     Indication: Dyspepsia
     Dosage: 75 MG (FREQ- OCCASIONAL)
     Route: 065
     Dates: start: 199210, end: 201506

REACTIONS (2)
  - Breast cancer stage I [Unknown]
  - Renal cancer [Unknown]

NARRATIVE: CASE EVENT DATE: 19940501
